FAERS Safety Report 6722740-1 (Version None)
Quarter: 2010Q2

REPORT INFORMATION
  Report Type: 
  Country: None (occurrence: None)
  Receive Date: 20100511
  Receipt Date: 20100430
  Transmission Date: 20101027
  Serious: Yes (Other)
  Sender: FDA-Public Use
  Company Number: 2010SP024762

PATIENT
  Sex: Male

DRUGS (1)
  1. CLARITIN [Suspect]
     Indication: URTICARIA
     Dosage: ; BID;

REACTIONS (3)
  - DRUG HYPERSENSITIVITY [None]
  - OVERDOSE [None]
  - SWELLING FACE [None]
